FAERS Safety Report 9185243 (Version 1)
Quarter: 2013Q1

REPORT INFORMATION
  Report Type: Report from Study
  Country: SE (occurrence: SE)
  Receive Date: 20130325
  Receipt Date: 20130325
  Transmission Date: 20140127
  Serious: Yes (Hospitalization)
  Sender: FDA-Public Use
  Company Number: SE-ABBOTT-13P-150-1039270-00

PATIENT
  Age: 64 Year
  Sex: Female

DRUGS (1)
  1. HUMIRA [Suspect]
     Indication: RHEUMATOID ARTHRITIS
     Route: 058
     Dates: start: 20070706, end: 20120807

REACTIONS (5)
  - Renal failure acute [Unknown]
  - Sarcoidosis [Unknown]
  - Rash generalised [Unknown]
  - Systemic lupus erythematosus [Unknown]
  - Swelling [Unknown]
